FAERS Safety Report 11754985 (Version 2)
Quarter: 2016Q2

REPORT INFORMATION
  Report Type: Report from Study
  Country: IT (occurrence: IT)
  Receive Date: 20151119
  Receipt Date: 20160429
  Transmission Date: 20160815
  Serious: Yes (Hospitalization)
  Sender: FDA-Public Use
  Company Number: IT-ROCHE-1583273

PATIENT
  Age: 35 Year
  Sex: Female
  Weight: 51 kg

DRUGS (6)
  1. CAPECITABINE. [Suspect]
     Active Substance: CAPECITABINE
     Indication: HER-2 POSITIVE GASTRIC CANCER
     Dosage: BID
     Route: 048
     Dates: start: 20150522, end: 20150522
  2. LANZOPRAZOL [Concomitant]
     Active Substance: LANSOPRAZOLE
     Dosage: INDICATION - GASTRO PROTECTOR
     Route: 048
     Dates: start: 20150506
  3. BLINDED PERTUZUMAB [Suspect]
     Active Substance: PERTUZUMAB
     Indication: HER-2 POSITIVE GASTRIC CANCER
     Route: 042
     Dates: start: 20150522, end: 20150522
  4. CAPECITABINE. [Suspect]
     Active Substance: CAPECITABINE
     Dosage: REDUCED DOSE
     Route: 048
     Dates: start: 20150528
  5. PLASIL [Concomitant]
     Active Substance: METOCLOPRAMIDE HYDROCHLORIDE
     Indication: NAUSEA
     Route: 048
     Dates: start: 20150522, end: 20150522
  6. FERROFOLIN [Concomitant]
     Indication: ANAEMIA
     Dosage: 1 AMPOULE
     Route: 048
     Dates: start: 20150522, end: 20150522

REACTIONS (1)
  - Bronchospasm [Recovered/Resolved]

NARRATIVE: CASE EVENT DATE: 20150522
